FAERS Safety Report 25229200 (Version 4)
Quarter: 2025Q4

REPORT INFORMATION
  Report Type: Spontaneous
  Country: US (occurrence: US)
  Receive Date: 20250423
  Receipt Date: 20251210
  Transmission Date: 20260118
  Serious: Yes (Other)
  Sender: BRISTOL-MYERS SQUIBB COMPANY
  Company Number: US-BRISTOL-MYERS SQUIBB COMPANY-2025-056029

PATIENT
  Age: 66 Year
  Sex: Female

DRUGS (20)
  1. REVLIMID [Suspect]
     Active Substance: LENALIDOMIDE
     Indication: Plasma cell myeloma
     Dosage: TAKE ONE CAPSULE (25 MG) BY MOUTH DAILY ON DAYS 1-21, THEN 7 DAYS OFF, IN A 28 DAY CYCLE
     Route: 048
     Dates: start: 20250122, end: 20250220
  2. KYPROLIS [Suspect]
     Active Substance: CARFILZOMIB
     Indication: Plasma cell myeloma
     Dosage: D5W 100 ML CHEMO INFUSION
     Route: 042
  3. KYPROLIS [Suspect]
     Active Substance: CARFILZOMIB
     Route: 042
  4. KYPROLIS [Suspect]
     Active Substance: CARFILZOMIB
     Route: 042
  5. KYPROLIS [Suspect]
     Active Substance: CARFILZOMIB
     Dosage: D5W 100 ML CHEMO INFUSION, 56MG/M2X 1.63M2,?INTRAVENOUS USE
     Route: 042
  6. KYPROLIS [Suspect]
     Active Substance: CARFILZOMIB
     Route: 042
  7. KYPROLIS [Suspect]
     Active Substance: CARFILZOMIB
     Dosage: IN D5W 100 ML CHEMO INFUSION
     Route: 042
     Dates: start: 20250501, end: 20250515
  8. KYPROLIS [Suspect]
     Active Substance: CARFILZOMIB
     Dosage: IN D5W 100ML CHEMO INFUSION, 56 MG/M^2X ONCE)
  9. KYPROLIS [Suspect]
     Active Substance: CARFILZOMIB
     Dosage: IN D5W 100ML CHEMO INFUSION, 20 MG/M2X 1.66M2)
  10. XGEVA [Suspect]
     Active Substance: DENOSUMAB
     Indication: Product used for unknown indication
     Route: 042
  11. DELTASONE [Concomitant]
     Active Substance: PREDNISONE
     Indication: Product used for unknown indication
  12. PROCHLORPERAZINE EDISYLATE [Concomitant]
     Active Substance: PROCHLORPERAZINE EDISYLATE
     Indication: Product used for unknown indication
  13. VALTREX [Concomitant]
     Active Substance: VALACYCLOVIR HYDROCHLORIDE
     Indication: Product used for unknown indication
     Dates: start: 20250123, end: 20250222
  14. CYTOXAN [Concomitant]
     Active Substance: CYCLOPHOSPHAMIDE
     Indication: Product used for unknown indication
  15. ONDANSETRON HYDROCHLORIDE [Concomitant]
     Active Substance: ONDANSETRON HYDROCHLORIDE
     Indication: Product used for unknown indication
  16. CALCIUM CARBONATE [Concomitant]
     Active Substance: CALCIUM CARBONATE
     Indication: Product used for unknown indication
  17. ERGOCALCIFEROL [Concomitant]
     Active Substance: ERGOCALCIFEROL
     Indication: Product used for unknown indication
  18. CARAFATE [Concomitant]
     Active Substance: SUCRALFATE
     Indication: Product used for unknown indication
  19. SEROQUEL [Concomitant]
     Active Substance: QUETIAPINE FUMARATE
     Indication: Product used for unknown indication
     Dates: start: 20250101, end: 20250222
  20. TYLENOL [Concomitant]
     Active Substance: ACETAMINOPHEN
     Indication: Product used for unknown indication

REACTIONS (9)
  - Hepatitis B antibody abnormal [Unknown]
  - Iron deficiency [Unknown]
  - Constipation [Unknown]
  - Oral pain [Unknown]
  - Insomnia [Unknown]
  - Oesophagitis [Unknown]
  - Anaemia [Unknown]
  - Alanine aminotransferase increased [Unknown]
  - Blood bilirubin increased [Unknown]

NARRATIVE: CASE EVENT DATE: 20250123
